FAERS Safety Report 5149648-X (Version None)
Quarter: 2006Q4

REPORT INFORMATION
  Report Type: 
  Country: None (occurrence: None)
  Receive Date: 20061113
  Receipt Date: 20060705
  Transmission Date: 20070319
  Serious: No
  Sender: FDA-Public Use
  Company Number: US-GLAXOSMITHKLINE-A0611156A

PATIENT
  Age: 69 Year
  Sex: Male
  Weight: 84.1 kg

DRUGS (4)
  1. COREG [Suspect]
     Dosage: 12.5MG TWICE PER DAY
     Route: 048
  2. ALTACE [Suspect]
     Indication: HYPERTENSION
     Route: 048
  3. LASIX [Concomitant]
  4. PRAVACHOL [Concomitant]

REACTIONS (5)
  - DIZZINESS [None]
  - ORTHOSTATIC HYPOTENSION [None]
  - PAIN IN EXTREMITY [None]
  - PERIPHERAL COLDNESS [None]
  - SKIN DISCOLOURATION [None]
